FAERS Safety Report 17258907 (Version 1)
Quarter: 2020Q1

REPORT INFORMATION
  Report Type: Report from Study
  Country: GR (occurrence: GR)
  Receive Date: 20200110
  Receipt Date: 20200110
  Transmission Date: 20200409
  Serious: Yes (Other)
  Sender: FDA-Public Use
  Company Number: GR-009507513-1912GRC010599

PATIENT
  Age: 73 Year
  Sex: Male
  Weight: 62 kg

DRUGS (5)
  1. FERO-FOLIC [Concomitant]
     Indication: ANAEMIA
     Dosage: 500 (UNITS NOT PROVIDED), 1X1
     Route: 048
  2. TRIATEC (RAMIPRIL) [Concomitant]
     Active Substance: RAMIPRIL
     Indication: HYPERTENSION
     Dosage: 5 MILLIGRAM, 1X1
     Route: 048
  3. FISIOTENS [Concomitant]
     Active Substance: MOXONIDINE
     Indication: HYPERTENSION
     Dosage: 0.4 (UNITS NOT PROVIDED), 1X1
     Route: 048
  4. PEMBROLIZUMAB. [Suspect]
     Active Substance: PEMBROLIZUMAB
     Indication: NON-SMALL CELL LUNG CANCER STAGE IV
     Dosage: 200 MILLIGRAM, Q3W
     Route: 042
     Dates: start: 20190514
  5. AMLOPEN [Concomitant]
     Indication: CARDIOVASCULAR DISORDER
     Dosage: 5 (UNITS NOT REPORTED), 1X1
     Route: 048

REACTIONS (1)
  - Thrombocytopenia [Recovered/Resolved]

NARRATIVE: CASE EVENT DATE: 20190820
